FAERS Safety Report 6025796-7 (Version None)
Quarter: 2008Q4

REPORT INFORMATION
  Report Type: 
  Country: None (occurrence: None)
  Receive Date: 20081224
  Receipt Date: 20081219
  Transmission Date: 20090506
  Serious: Yes (Hospitalization)
  Sender: FDA-Public Use
  Company Number: 232701K08USA

PATIENT
  Age: 37 Year
  Sex: Female
  Weight: 92 kg

DRUGS (3)
  1. REBIF [Suspect]
     Indication: MULTIPLE SCLEROSIS
     Dosage: 44 MCG, 3 IN 1 WEEKS, SUBCUTANEOUS
     Route: 058
     Dates: start: 20080825
  2. AMBIEN [Concomitant]
  3. CELEXA [Concomitant]

REACTIONS (2)
  - BACK PAIN [None]
  - NEPHROLITHIASIS [None]
